FAERS Safety Report 9775402 (Version 2)
Quarter: 2014Q1

REPORT INFORMATION
  Report Type: Spontaneous
  Country: US (occurrence: US)
  Receive Date: 20131220
  Receipt Date: 20140318
  Transmission Date: 20141002
  Serious: No
  Sender: FDA-Public Use
  Company Number: US-GALDERMA-US13003353

PATIENT
  Age: 64 Year
  Sex: Female

DRUGS (3)
  1. MIRVASO (BRIMONIDINE) TOPICAL GEL, 0.33% [Suspect]
     Indication: ERYTHEMA
     Dosage: 0.33%
     Route: 061
     Dates: start: 20131011, end: 20131020
  2. ORACEA (DOXYCYCLINE, USP) CAPSULES 40 MG [Concomitant]
     Dosage: 40 MG
     Route: 048
     Dates: start: 20130128
  3. METRONIDAZOLE CREAM (METRONIDAZOLE) 0.75% [Concomitant]
     Dosage: 0.75%
     Route: 061

REACTIONS (5)
  - Condition aggravated [Recovered/Resolved]
  - Skin discolouration [Recovered/Resolved]
  - Rebound effect [Recovered/Resolved]
  - Erythema [Recovered/Resolved]
  - Off label use [Recovered/Resolved]
